FAERS Safety Report 16710727 (Version 1)
Quarter: 2019Q3

REPORT INFORMATION
  Report Type: Spontaneous
  Country: US (occurrence: US)
  Receive Date: 20190701
  Receipt Date: 20190701
  Transmission Date: 20191004
  Serious: Yes (Hospitalization)
  Sender: FDA-Public Use
  Company Number: None

PATIENT
  Age: 89 Year
  Sex: Male

DRUGS (10)
  1. CALCIUM+D [Concomitant]
     Active Substance: CALCIUM\VITAMIN D
  2. LABETOLOL [Concomitant]
     Active Substance: LABETALOL HYDROCHLORIDE
  3. BICALUTAMIDE. [Concomitant]
     Active Substance: BICALUTAMIDE
  4. LOSARTAN. [Concomitant]
     Active Substance: LOSARTAN
  5. ZYTIGA [Suspect]
     Active Substance: ABIRATERONE ACETATE
     Indication: PROSTATE CANCER
     Route: 048
  6. AMLODIPINE [Concomitant]
     Active Substance: AMLODIPINE BESYLATE
  7. PREDNISONE. [Concomitant]
     Active Substance: PREDNISONE
  8. LEUPROLIDE [Concomitant]
     Active Substance: LEUPROLIDE
  9. HYDROCHLORTHIAZIDE [Concomitant]
     Active Substance: HYDROCHLOROTHIAZIDE
  10. POTASSIUM [Concomitant]
     Active Substance: POTASSIUM

REACTIONS (3)
  - Fall [None]
  - Cardiac disorder [None]
  - Dizziness [None]
